FAERS Safety Report 14772995 (Version 2)
Quarter: 2018Q2

REPORT INFORMATION
  Report Type: Spontaneous
  Country: US (occurrence: US)
  Receive Date: 20180418
  Receipt Date: 20180518
  Transmission Date: 20180711
  Serious: No
  Sender: FDA-Public Use
  Company Number: US-PFIZER INC-2018128035

PATIENT
  Age: 86 Year
  Sex: Female
  Weight: 58.97 kg

DRUGS (3)
  1. ZITHROMAX [Concomitant]
     Active Substance: AZITHROMYCIN DIHYDRATE
     Indication: INFLUENZA
     Dosage: UNK
     Dates: start: 20180321, end: 20180327
  2. BENZONATATE. [Suspect]
     Active Substance: BENZONATATE
     Dosage: 100 MG, UNK [4 TO 6 HOURS]
     Dates: start: 20180321, end: 20180331
  3. ROBITUSSIN (GUAIFENESIN) [Suspect]
     Active Substance: GUAIFENESIN
     Dosage: 10 MG, UNK [2 X 5 A DAY]

REACTIONS (1)
  - Drug ineffective [Recovered/Resolved]

NARRATIVE: CASE EVENT DATE: 20180321
